FAERS Safety Report 9557506 (Version 1)
Quarter: 2013Q3

REPORT INFORMATION
  Report Type: Spontaneous
  Country: FR (occurrence: FR)
  Receive Date: 20130926
  Receipt Date: 20130926
  Transmission Date: 20140515
  Serious: Yes (Life-Threatening)
  Sender: FDA-Public Use
  Company Number: FR-ASTRAZENECA-2013SE71393

PATIENT
  Age: 21526 Day
  Sex: Male

DRUGS (6)
  1. CRESTOR [Suspect]
     Indication: HYPERCHOLESTEROLAEMIA
     Route: 048
     Dates: start: 2012, end: 20130512
  2. CELEBREX [Interacting]
     Indication: BACK PAIN
     Route: 048
     Dates: start: 20130510, end: 20130512
  3. SOLUPRED [Interacting]
     Indication: LUNG DISORDER
     Route: 048
     Dates: start: 20130508, end: 20130512
  4. OFLOCET [Concomitant]
     Indication: LUNG DISORDER
     Dates: start: 201305, end: 2013
  5. AUGMENTIN [Concomitant]
     Indication: LUNG DISORDER
     Dates: start: 2013, end: 2013
  6. VITAMINS [Concomitant]

REACTIONS (5)
  - Drug interaction [Unknown]
  - Cardiac failure [Recovered/Resolved]
  - Renal tubular necrosis [Recovered/Resolved]
  - Rhabdomyolysis [Recovered/Resolved]
  - Renal failure acute [Recovered/Resolved]
